FAERS Safety Report 7832821-7 (Version None)
Quarter: 2011Q4

REPORT INFORMATION
  Report Type: 
  Country: None (occurrence: None)
  Receive Date: 20111024
  Receipt Date: 20111011
  Transmission Date: 20120403
  Serious: Yes (Other)
  Sender: FDA-Public Use
  Company Number: US-RANBAXY-2011RR-49605

PATIENT
  Sex: Female

DRUGS (23)
  1. CIPROFLOXACIN [Suspect]
     Dosage: 500 MG, UNK
     Route: 048
     Dates: start: 20050119
  2. PREDNISOLONE [Suspect]
     Dosage: UNK
     Route: 065
     Dates: start: 20070911
  3. PREDNISOLONE [Suspect]
     Dosage: UNK
     Route: 065
     Dates: start: 20090416
  4. CIPROFLOXACIN [Suspect]
     Dosage: UNK
     Route: 048
     Dates: start: 20050401
  5. PREDNISOLONE [Suspect]
     Dosage: UNK
     Route: 065
     Dates: start: 20020819
  6. PREDNISOLONE [Suspect]
     Dosage: UNK
     Route: 065
     Dates: start: 20061002
  7. AVELOX [Suspect]
     Indication: INFECTION
     Dosage: UNK
     Route: 065
     Dates: start: 20050301, end: 20050401
  8. LEVAQUIN [Suspect]
     Dosage: 500 MG, UNK
     Route: 048
     Dates: start: 20090528
  9. CIPROFLOXACIN [Suspect]
     Dosage: UNK
     Route: 048
     Dates: start: 20020201
  10. PREDNISOLONE [Suspect]
     Indication: STEROID THERAPY
     Dosage: UNK
     Route: 065
     Dates: start: 20010614
  11. PREDNISOLONE [Suspect]
     Dosage: UNK
     Route: 065
     Dates: start: 20040810
  12. PREDNISOLONE [Suspect]
     Dosage: UNK
     Route: 065
     Dates: start: 20051110
  13. PREDNISOLONE [Suspect]
     Dosage: UNK
     Route: 065
     Dates: start: 20080507
  14. CIPROFLOXACIN [Suspect]
     Dosage: 250 MG, UNK
     Route: 048
     Dates: start: 20040311
  15. CIPROFLOXACIN [Suspect]
     Dosage: 500 MG, UNK
     Route: 048
     Dates: start: 20030321
  16. CIPROFLOXACIN [Suspect]
     Dosage: UNK
     Route: 048
     Dates: start: 20050301
  17. CIPROFLOXACIN [Suspect]
     Indication: INFECTION
     Dosage: 250 MG, UNK
     Route: 048
     Dates: start: 20020422
  18. CIPROFLOXACIN [Suspect]
     Dosage: 500 MG, UNK
     Route: 048
     Dates: start: 20030702
  19. PREDNISOLONE [Suspect]
     Dosage: UNK
     Route: 065
     Dates: start: 20021009
  20. PREDNISOLONE [Suspect]
     Dosage: UNK
     Route: 065
     Dates: start: 20030909
  21. PREDNISOLONE [Suspect]
     Dosage: UNK
     Route: 065
     Dates: start: 20021023
  22. PREDNISOLONE [Suspect]
     Dosage: UNK
     Route: 065
     Dates: start: 20041206
  23. LEVAQUIN [Suspect]
     Indication: RESPIRATORY TRACT INFECTION
     Dosage: 500 MG, UNK
     Route: 048
     Dates: start: 20090323

REACTIONS (2)
  - TENOSYNOVITIS [None]
  - ROTATOR CUFF SYNDROME [None]
